FAERS Safety Report 9976681 (Version 1)
Quarter: 2014Q1

REPORT INFORMATION
  Report Type: Report from Study
  Country: US (occurrence: US)
  Receive Date: 20140306
  Receipt Date: 20140306
  Transmission Date: 20141002
  Serious: No
  Sender: FDA-Public Use
  Company Number: US-ABBVIE-13P-163-1166098-00

PATIENT
  Age: 28 Year
  Sex: Female

DRUGS (4)
  1. HUMIRA [Suspect]
     Indication: CROHN^S DISEASE
     Dates: start: 20131017
  2. HUMIRA [Suspect]
     Dates: start: 20131031
  3. MULTIVITAMINS [Concomitant]
     Indication: PRODUCT USED FOR UNKNOWN INDICATION
  4. BIRTH CONTROL PILLS [Concomitant]
     Indication: CONTRACEPTION

REACTIONS (2)
  - Dizziness [Recovered/Resolved]
  - Dizziness [Recovered/Resolved]
